FAERS Safety Report 5668733-7 (Version None)
Quarter: 2008Q1

REPORT INFORMATION
  Report Type: 
  Country: None (occurrence: None)
  Receive Date: 20080312
  Receipt Date: 20080312
  Transmission Date: 20080703
  Serious: Yes (Hospitalization)
  Sender: FDA-Public Use
  Company Number: None

PATIENT
  Sex: Female
  Weight: 56.6 kg

DRUGS (5)
  1. FLUOROURACIL [Suspect]
     Dosage: 11175 MG
     Dates: end: 20080220
  2. BEVACIZUMAB (RHUMAB VEGF) [Suspect]
     Dosage: 840 MG
     Dates: end: 20080220
  3. LEUCOVORIN CALCIUM [Suspect]
     Dosage: 1980 MG
     Dates: end: 20080220
  4. ELOXATIN [Suspect]
     Dosage: 300 MG
     Dates: end: 20080220
  5. HYDROCHLOROTHIAZIDE [Concomitant]

REACTIONS (12)
  - ABDOMINAL PAIN [None]
  - ANOREXIA [None]
  - BLOOD POTASSIUM DECREASED [None]
  - BLOOD SODIUM DECREASED [None]
  - DIARRHOEA [None]
  - DIZZINESS POSTURAL [None]
  - FAECES DISCOLOURED [None]
  - FLUID INTAKE REDUCED [None]
  - NAUSEA [None]
  - ORAL INTAKE REDUCED [None]
  - ORTHOSTATIC HYPOTENSION [None]
  - WEIGHT DECREASED [None]
